FAERS Safety Report 19393135 (Version 1)
Quarter: 2021Q2

REPORT INFORMATION
  Report Type: Spontaneous
  Country: FR (occurrence: FR)
  Receive Date: 20210609
  Receipt Date: 20210609
  Transmission Date: 20210717
  Serious: Yes (Hospitalization, Other)
  Sender: FDA-Public Use
  Company Number: FR-SUN PHARMACEUTICAL INDUSTRIES LTD-2021RR-299916

PATIENT
  Age: 50 Year
  Sex: Female

DRUGS (1)
  1. TRAMADOL. [Suspect]
     Active Substance: TRAMADOL
     Indication: PRODUCT USED FOR UNKNOWN INDICATION
     Dosage: 200 MG LP X2 / DAY + 50 MG LI X7 / DAY ()
     Route: 048

REACTIONS (1)
  - Drug use disorder [Not Recovered/Not Resolved]
